FAERS Safety Report 8375580-4 (Version None)
Quarter: 2012Q2

REPORT INFORMATION
  Report Type: 
  Country: None (occurrence: None)
  Receive Date: 20120517
  Receipt Date: 20120517
  Transmission Date: 20120825
  Serious: Yes (Other)
  Sender: FDA-Public Use
  Company Number: None

PATIENT
  Age: 86 Year
  Sex: Female
  Weight: 7 kg

DRUGS (1)
  1. LEVETIRACETA 250MG WALMART [Suspect]

REACTIONS (3)
  - AGGRESSION [None]
  - HALLUCINATION [None]
  - MEMORY IMPAIRMENT [None]
